FAERS Safety Report 8151752-9 (Version None)
Quarter: 2012Q1

REPORT INFORMATION
  Report Type: 
  Country: None (occurrence: None)
  Receive Date: 20120221
  Receipt Date: 20120210
  Transmission Date: 20120608
  Serious: No
  Sender: FDA-Public Use
  Company Number: US-BIOGENIDEC-2011BI038669

PATIENT
  Age: 53 Year
  Sex: Female

DRUGS (2)
  1. TYSABRI [Suspect]
     Indication: MULTIPLE SCLEROSIS
     Route: 042
     Dates: start: 20110801
  2. AVONEX [Concomitant]
     Indication: MULTIPLE SCLEROSIS
     Route: 030
     Dates: start: 20060421

REACTIONS (10)
  - ANGER [None]
  - ERYTHEMA [None]
  - DIZZINESS [None]
  - MALAISE [None]
  - BLOOD PRESSURE FLUCTUATION [None]
  - AGGRESSION [None]
  - ABNORMAL SENSATION IN EYE [None]
  - DEPRESSION [None]
  - HEADACHE [None]
  - OEDEMA PERIPHERAL [None]
